FAERS Safety Report 5054449-7 (Version None)
Quarter: 2006Q3

REPORT INFORMATION
  Report Type: 
  Country: None (occurrence: None)
  Receive Date: 20060713
  Receipt Date: 20060705
  Transmission Date: 20061208
  Serious: Yes (Hospitalization)
  Sender: FDA-Public Use
  Company Number: 2006BH011611

PATIENT
  Age: 35 Year
  Sex: Male
  Weight: 76 kg

DRUGS (8)
  1. REGLAN [Suspect]
     Indication: DRUG USE FOR UNKNOWN INDICATION
  2. TEMODAR [Suspect]
     Indication: ASTROCYTOMA
     Dosage: 150 MG; EVERY DAY; PO
     Route: 048
     Dates: start: 20060503, end: 20060604
  3. TRILEPTAL [Suspect]
  4. BACTRIM [Suspect]
  5. DILANTIN [Concomitant]
  6. PREDNISONE [Concomitant]
  7. DECADRON [Concomitant]
  8. BENADRYL [Concomitant]

REACTIONS (3)
  - DRUG HYPERSENSITIVITY [None]
  - ERYTHEMA MULTIFORME [None]
  - REFUSAL OF TREATMENT BY PATIENT [None]
